FAERS Safety Report 17625440 (Version 1)
Quarter: 2020Q2

REPORT INFORMATION
  Report Type: Spontaneous
  Country: GB (occurrence: GB)
  Receive Date: 20200403
  Receipt Date: 20200403
  Transmission Date: 20200713
  Serious: Yes (Disabling)
  Sender: FDA-Public Use
  Company Number: GB-AUROBINDO-AUR-APL-2020-016167

PATIENT
  Age: 7 Year
  Sex: Male

DRUGS (1)
  1. MONTELUKAST CHEWABLE TABLET [Suspect]
     Active Substance: MONTELUKAST SODIUM
     Indication: PRODUCT USED FOR UNKNOWN INDICATION
     Dosage: 5 MILLIGRAM
     Route: 065
     Dates: start: 20200309

REACTIONS (1)
  - Sleep terror [Recovering/Resolving]

NARRATIVE: CASE EVENT DATE: 20200309
